FAERS Safety Report 7777325-5 (Version None)
Quarter: 2011Q3

REPORT INFORMATION
  Report Type: 
  Country: None (occurrence: None)
  Receive Date: 20110926
  Receipt Date: 20110921
  Transmission Date: 20111222
  Serious: Yes (Death, Hospitalization)
  Sender: FDA-Public Use
  Company Number: PHHY2011CR83758

PATIENT
  Age: 86 Year
  Sex: Male

DRUGS (6)
  1. SPASMO CANULASE PRN [Concomitant]
     Dosage: UNK UKN, PRN
  2. ASPIRIN [Concomitant]
  3. CONTROLIP (ETOFYLLINE CLOFIBRATE) [Concomitant]
  4. DIOVAN HCT [Suspect]
     Indication: HYPERTENSION
     Dosage: 1 DF, 320 MG VALSARTAN/ 25 MG HCT
     Route: 048
  5. NORVASC [Concomitant]
  6. CITALOPRAM HYDROBROMIDE [Concomitant]

REACTIONS (3)
  - DEATH [None]
  - INFARCTION [None]
  - ABDOMINAL PAIN UPPER [None]
